FAERS Safety Report 9206135 (Version 1)
Quarter: 2013Q1

REPORT INFORMATION
  Report Type: Spontaneous
  Country: US (occurrence: None)
  Receive Date: 20120731
  Receipt Date: 20120731
  Transmission Date: 20140127
  Serious: No
  Sender: FDA-Public Use
  Company Number: US201112003524

PATIENT
  Age: 70 Year
  Sex: Male
  Weight: 83.9 kg

DRUGS (3)
  1. BYETTA (EXENATIDE) PEN, DISPOSABLE [Suspect]
     Indication: TYPE 2 DIABETES MELLITUS
     Route: 058
  2. GLUCOPHAGE/USA/(METFORMIN HYDROCHLORIDE) [Concomitant]
  3. GLIPIZIDE (GLIPIZIDE) [Concomitant]

REACTIONS (3)
  - Blood glucose increased [None]
  - Blood glucose fluctuation [None]
  - Nausea [None]
